FAERS Safety Report 19095172 (Version 3)
Quarter: 2021Q3

REPORT INFORMATION
  Report Type: Spontaneous
  Country: ES (occurrence: ES)
  Receive Date: 20210405
  Receipt Date: 20210702
  Transmission Date: 20211014
  Serious: Yes (Other)
  Sender: FDA-Public Use
  Company Number: ES-CELLTRION INC.-2021ES004228

PATIENT

DRUGS (6)
  1. INFLECTRA [Suspect]
     Active Substance: INFLIXIMAB-DYYB
     Indication: CROHN^S DISEASE
     Dosage: 5 MG/KG (8 WEEKS)
     Route: 065
     Dates: start: 20180122
  2. INFLIXIMAB (UNKNOWN) [Suspect]
     Active Substance: INFLIXIMAB
     Dosage: UNK UNK, NO TREATMENT
     Route: 065
  3. MESALAZINE [Concomitant]
     Active Substance: MESALAMINE
     Indication: PRODUCT USED FOR UNKNOWN INDICATION
     Dosage: UNK
     Route: 054
  4. INFLIXIMAB (UNKNOWN) [Suspect]
     Active Substance: INFLIXIMAB
     Indication: CROHN^S DISEASE
     Dosage: 5 MG/KG (8 WEEKS)
     Route: 065
  5. INFLIXIMAB (UNKNOWN) [Suspect]
     Active Substance: INFLIXIMAB
     Dosage: 5 MG/KG EVERY 8 WEEKS
     Route: 065
  6. INFLECTRA [Suspect]
     Active Substance: INFLIXIMAB-DYYB
     Dosage: 430?432 MG
     Route: 065

REACTIONS (7)
  - Chronic papillomatous dermatitis [Recovered/Resolved]
  - Scab [Recovered/Resolved]
  - Off label use [Unknown]
  - Pseudolymphoma [Recovered/Resolved]
  - Lymphoid tissue hyperplasia [Recovered/Resolved]
  - Ear swelling [Recovered/Resolved]
  - Tumour ulceration [Recovered/Resolved]

NARRATIVE: CASE EVENT DATE: 20180628
